FAERS Safety Report 13710126 (Version 1)
Quarter: 2017Q3

REPORT INFORMATION
  Report Type: Report from Study
  Country: ES (occurrence: ES)
  Receive Date: 20170703
  Receipt Date: 20170703
  Transmission Date: 20171127
  Serious: Yes (Death, Other)
  Sender: FDA-Public Use
  Company Number: ES-ROCHE-1955172

PATIENT

DRUGS (14)
  1. METHYLPREDNISOLONE. [Suspect]
     Active Substance: METHYLPREDNISOLONE
     Dosage: ON FIRST DAY OF TRANSPLANTATION
     Route: 065
  2. BASILIXIMAB [Suspect]
     Active Substance: BASILIXIMAB
     Indication: PROPHYLAXIS AGAINST TRANSPLANT REJECTION
     Dosage: INDUCTION THERAPY
     Route: 065
  3. AMPHOTERICIN B. [Concomitant]
     Active Substance: AMPHOTERICIN B
     Route: 050
  4. CYCLOSPORINE. [Suspect]
     Active Substance: CYCLOSPORINE
     Indication: PROPHYLAXIS AGAINST TRANSPLANT REJECTION
     Route: 065
  5. METHYLPREDNISOLONE. [Suspect]
     Active Substance: METHYLPREDNISOLONE
     Indication: PROPHYLAXIS AGAINST TRANSPLANT REJECTION
     Dosage: IN THE OPERATING ROOM
     Route: 065
  6. METHYLPREDNISOLONE. [Suspect]
     Active Substance: METHYLPREDNISOLONE
     Dosage: GRADUALLY TAPERING OVER THE FIRST YEAR TO REACH A MAINTENANCE DOSE OF 0.1-0.2 MG/KG/DAY.
     Route: 065
  7. GANCICLOVIR. [Suspect]
     Active Substance: GANCICLOVIR
     Indication: ANTIVIRAL PROPHYLAXIS
     Route: 042
  8. VALGANCICLOVIR. [Suspect]
     Active Substance: VALGANCICLOVIR
     Indication: ANTIVIRAL PROPHYLAXIS
     Route: 048
  9. TACROLIMUS. [Suspect]
     Active Substance: TACROLIMUS
     Indication: PROPHYLAXIS AGAINST TRANSPLANT REJECTION
     Route: 065
  10. ITRACONAZOLE. [Concomitant]
     Active Substance: ITRACONAZOLE
     Route: 050
  11. MYCOPHENOLATE MOFETIL. [Suspect]
     Active Substance: MYCOPHENOLATE MOFETIL
     Indication: PROPHYLAXIS AGAINST TRANSPLANT REJECTION
     Route: 065
  12. AZATHIOPRINE. [Suspect]
     Active Substance: AZATHIOPRINE
     Indication: PROPHYLAXIS AGAINST TRANSPLANT REJECTION
     Route: 065
  13. SIROLIMUS. [Suspect]
     Active Substance: SIROLIMUS
     Indication: PROPHYLAXIS AGAINST TRANSPLANT REJECTION
     Route: 065
  14. EVEROLIMUS [Suspect]
     Active Substance: EVEROLIMUS
     Indication: PROPHYLAXIS AGAINST TRANSPLANT REJECTION
     Route: 065

REACTIONS (19)
  - Respiratory tract infection fungal [Unknown]
  - Bronchitis [Unknown]
  - Pneumonia [Unknown]
  - Sepsis [Fatal]
  - Bronchopulmonary aspergillosis [Fatal]
  - Cytomegalovirus syndrome [Unknown]
  - Cytomegalovirus infection [Unknown]
  - Anaemia [Unknown]
  - Cytomegalovirus gastroenteritis [Unknown]
  - Forced expiratory volume decreased [Unknown]
  - Fungal infection [Unknown]
  - Leukopenia [Unknown]
  - Pneumonia viral [Fatal]
  - Thrombocytopenia [Unknown]
  - Renal impairment [Unknown]
  - Hepatobiliary disease [Unknown]
  - Pneumonia bacterial [Fatal]
  - Neoplasm malignant [Fatal]
  - Cytomegalovirus viraemia [Unknown]
